FAERS Safety Report 17362113 (Version 1)
Quarter: 2020Q1

REPORT INFORMATION
  Report Type: Spontaneous
  Country: US (occurrence: US)
  Receive Date: 20200203
  Receipt Date: 20200203
  Transmission Date: 20200409
  Serious: Yes (Other)
  Sender: FDA-Public Use
  Company Number: US-PFIZER INC-2020041681

PATIENT
  Age: 65 Year
  Sex: Female

DRUGS (1)
  1. SUTENT [Suspect]
     Active Substance: SUNITINIB MALATE
     Indication: CLEAR CELL RENAL CELL CARCINOMA
     Dosage: 37.5 MG, CYCLIC (6 WEEKS ON)

REACTIONS (17)
  - White blood cell count decreased [Unknown]
  - Hair colour changes [Unknown]
  - Yellow skin [Unknown]
  - Systemic lupus erythematosus [Unknown]
  - Feeling abnormal [Unknown]
  - Red blood cell count decreased [Unknown]
  - Palmar-plantar erythrodysaesthesia syndrome [Unknown]
  - Platelet count decreased [Unknown]
  - Tumour rupture [Unknown]
  - Fatigue [Unknown]
  - Stomatitis [Unknown]
  - Headache [Unknown]
  - Hypertension [Unknown]
  - Dysgeusia [Unknown]
  - Burning sensation [Unknown]
  - Neoplasm progression [Unknown]
  - Diarrhoea [Unknown]
